FAERS Safety Report 5701782-9 (Version None)
Quarter: 2008Q2

REPORT INFORMATION
  Report Type: 
  Country: None (occurrence: None)
  Receive Date: 20080410
  Receipt Date: 20080410
  Transmission Date: 20081010
  Serious: No
  Sender: FDA-Public Use
  Company Number: None

PATIENT
  Sex: Female
  Weight: 52.1637 kg

DRUGS (1)
  1. LYRICA [Suspect]
     Indication: FIBROMYALGIA
     Dosage: 1 CAPSULE AT BEDTIME BY MOUTH
     Route: 048
     Dates: start: 20080311, end: 20080315

REACTIONS (3)
  - DYSPNOEA [None]
  - HEADACHE [None]
  - NAUSEA [None]
